FAERS Safety Report 4373081-1 (Version None)
Quarter: 2004Q2

REPORT INFORMATION
  Report Type: 
  Country: None (occurrence: None)
  Receive Date: 20040526
  Receipt Date: 20040510
  Transmission Date: 20050107
  Serious: Yes (Hospitalization, Other)
  Sender: FDA-Public Use
  Company Number: JP-JNJFOC-20040502107

PATIENT
  Age: 39 Year
  Sex: Male

DRUGS (13)
  1. LEUSTATIN [Suspect]
     Indication: HAIRY CELL LEUKAEMIA
     Dosage: 8 MG, IN 1 DAY, INTRAVENOUS DRIP
     Route: 041
     Dates: start: 20030926, end: 20030930
  2. FLUCONAZOLE [Concomitant]
  3. BACTRIM [Concomitant]
  4. ZOPICLONE (ZOPICLONE) [Concomitant]
  5. LOXOPROFEN SODIUM (LOXOPROFEN SODIUM) [Concomitant]
  6. TEPRENONE (TEPRENONE) [Concomitant]
  7. CEFOZOPRAN HYDROCHLORIDE (CEFOZOPRAN HYDROCHLORIDE) [Concomitant]
  8. AMIKACIN SULFATE [Concomitant]
  9. MEROPENEM TRIHYDRATE (MEROPENEM) [Concomitant]
  10. MICAFUNGIN SODIUM (ALL OTHER THERAPEUTIC PRODUCTS) [Concomitant]
  11. FAMOTIDINE [Concomitant]
  12. CEFTAZIDIME SODIUM [Concomitant]
  13. MINOCYCLINE HYDROCHLORIDE [Concomitant]

REACTIONS (12)
  - ANAEMIA [None]
  - C-REACTIVE PROTEIN INCREASED [None]
  - ELECTROLYTE IMBALANCE [None]
  - HEPATIC STEATOSIS [None]
  - HEPATOCELLULAR DAMAGE [None]
  - HYPOALBUMINAEMIA [None]
  - HYPOPROTEINAEMIA [None]
  - LEUKOPENIA [None]
  - MARKEDLY REDUCED DIETARY INTAKE [None]
  - PYREXIA [None]
  - THROMBOCYTOPENIA [None]
  - WHITE BLOOD CELL DISORDER [None]
